FAERS Safety Report 16330471 (Version 1)
Quarter: 2019Q2

REPORT INFORMATION
  Report Type: Spontaneous
  Country: GB (occurrence: GB)
  Receive Date: 20190520
  Receipt Date: 20190520
  Transmission Date: 20190711
  Serious: Yes (Other)
  Sender: FDA-Public Use
  Company Number: GB-ROCHE-2318438

PATIENT
  Age: 38 Year
  Sex: Female

DRUGS (10)
  1. DIAZEPAM. [Suspect]
     Active Substance: DIAZEPAM
     Dosage: STARTED AGAIN AND STOPPED AGAIN DUE TO COMA AND HYPOTHERMIA
     Route: 065
  2. LITHIUM CARBONATE. [Suspect]
     Active Substance: LITHIUM CARBONATE
     Dosage: AGAIN STARTED AS AGGRESSION REAPPEARED
     Route: 065
  3. LITHIUM CARBONATE. [Suspect]
     Active Substance: LITHIUM CARBONATE
     Dosage: STOPPED DUE TO COMA AND HYPOTHERMIA
     Route: 065
     Dates: start: 197604
  4. LITHIUM CARBONATE. [Suspect]
     Active Substance: LITHIUM CARBONATE
     Dosage: RESATRED AGAIN
     Route: 065
  5. PERPHENAZINE. [Concomitant]
     Active Substance: PERPHENAZINE
     Indication: AGGRESSION
  6. DIAZEPAM. [Suspect]
     Active Substance: DIAZEPAM
     Dosage: WAS STARTED AGAIN
     Route: 065
  7. DIAZEPAM. [Suspect]
     Active Substance: DIAZEPAM
     Indication: AGGRESSION
     Route: 065
  8. DIAZEPAM. [Suspect]
     Active Substance: DIAZEPAM
     Dosage: STOPPED LATER DUE TO HYPOTHERMIA AND COMA
     Route: 065
     Dates: start: 197604
  9. LITHIUM CARBONATE. [Suspect]
     Active Substance: LITHIUM CARBONATE
     Indication: AGGRESSION
     Dosage: WAS INTERRUPTED; DIAZEPAM ALONE WAS CONTINUED
     Route: 065
     Dates: start: 197408
  10. LITHIUM CARBONATE. [Suspect]
     Active Substance: LITHIUM CARBONATE
     Dosage: STOPPED AGAIN DUE TO COMA AND HYPOTHERMIA
     Route: 065

REACTIONS (2)
  - Coma [Recovered/Resolved]
  - Hypothermia [Unknown]

NARRATIVE: CASE EVENT DATE: 197409
